FAERS Safety Report 7932185-4 (Version None)
Quarter: 2011Q4

REPORT INFORMATION
  Report Type: 
  Country: None (occurrence: None)
  Receive Date: 20111121
  Receipt Date: 20111110
  Transmission Date: 20120403
  Serious: Yes (Other)
  Sender: FDA-Public Use
  Company Number: US-ASTRAZENECA-2011SE68668

PATIENT
  Age: 65 Year
  Sex: Male

DRUGS (1)
  1. CRESTOR [Suspect]
     Route: 048

REACTIONS (5)
  - DIABETES MELLITUS [None]
  - ANXIETY [None]
  - SPINAL FRACTURE [None]
  - BLINDNESS TRANSIENT [None]
  - CHEST PAIN [None]
